FAERS Safety Report 9302212 (Version 1)
Quarter: 2013Q2

REPORT INFORMATION
  Report Type: Spontaneous
  Country: US (occurrence: US)
  Receive Date: 20130522
  Receipt Date: 20130522
  Transmission Date: 20140414
  Serious: No
  Sender: FDA-Public Use
  Company Number: US-B.I. PHARMACEUTICALS,INC./RIDGEFIELD-2013-BI-13589BP

PATIENT
  Sex: Female

DRUGS (4)
  1. CATAPRES TTS [Suspect]
     Indication: HYPERTENSION
     Dosage: STRENGTH-7.5MG (0.3MG) QWEEK
     Route: 061
     Dates: start: 2003, end: 2012
  2. CATAPRES TTS [Suspect]
     Dosage: STRENGTH-7.5MG (0.3MG) QWEEK
     Route: 061
     Dates: start: 2012
  3. SPIRIVA [Suspect]
     Indication: CHRONIC OBSTRUCTIVE PULMONARY DISEASE
     Dosage: 18 MCG
     Route: 055
     Dates: start: 2011
  4. CLONIDINE PATCH [Concomitant]
     Indication: HYPERTENSION
     Dosage: FORMULATION-PATCH
     Route: 061
     Dates: start: 2012, end: 2012

REACTIONS (3)
  - Chronic obstructive pulmonary disease [Not Recovered/Not Resolved]
  - Rash [Recovered/Resolved]
  - Gait disturbance [Not Recovered/Not Resolved]
